FAERS Safety Report 9170122 (Version 2)
Quarter: 2013Q1

REPORT INFORMATION
  Report Type: Spontaneous
  Country: FR (occurrence: None)
  Receive Date: 20130311
  Receipt Date: 20130328
  Transmission Date: 20140127
  Serious: Yes (Other)
  Sender: FDA-Public Use
  Company Number: 2013FR0088

PATIENT
  Age: 6 Year
  Sex: Male

DRUGS (5)
  1. ANAKINRA [Suspect]
     Indication: JUVENILE IDIOPATHIC ARTHRITIS
     Dosage: (2 MG/KG,1 IN 1 D)
  2. CYCLOSPORIN (CYCLOSPORIN) [Concomitant]
  3. METHYLPREDNISONE (METHYLPREDNISONE) [Concomitant]
  4. CORTICOSTEROID (CORTICOSTEROID) [Concomitant]
  5. CYCLOSPORIN (CYCLOSPORIN) [Concomitant]

REACTIONS (5)
  - Histiocytosis haematophagic [None]
  - Circulatory collapse [None]
  - Leukocytosis [None]
  - Lymphadenopathy [None]
  - Hepatosplenomegaly [None]
